FAERS Safety Report 5491661-7 (Version None)
Quarter: 2007Q4

REPORT INFORMATION
  Report Type: 
  Country: None (occurrence: None)
  Receive Date: 20071022
  Receipt Date: 20071017
  Transmission Date: 20080405
  Serious: Yes (Life-Threatening)
  Sender: FDA-Public Use
  Company Number: JP-BAYER-200710694BYL

PATIENT
  Age: 73 Year
  Sex: Female
  Weight: 55 kg

DRUGS (11)
  1. CIPROXAN-I.V. [Suspect]
     Indication: STENT RELATED INFECTION
     Dosage: TOTAL DAILY DOSE: 600 MG  UNIT DOSE: 300 MG
     Route: 041
     Dates: start: 20070908, end: 20070919
  2. TICLOPIDINE HCL [Suspect]
     Route: 048
     Dates: start: 20070825, end: 20070910
  3. ASPIRIN [Concomitant]
     Route: 048
     Dates: end: 20070926
  4. NITROGLYCERIN [Concomitant]
     Route: 040
     Dates: end: 20070828
  5. PENTCILLIN [Concomitant]
     Route: 040
     Dates: end: 20070906
  6. RENIVACE [Concomitant]
     Route: 048
     Dates: start: 20070701
  7. NORVASC [Concomitant]
     Route: 048
     Dates: start: 20070701
  8. OLMETEC [Concomitant]
     Route: 048
     Dates: start: 20070801
  9. THYRADIN [Concomitant]
     Route: 048
  10. VESICARE [Concomitant]
     Route: 048
     Dates: start: 20070803
  11. SPIRIVA [Concomitant]
     Route: 048
     Dates: start: 20070808

REACTIONS (1)
  - AGRANULOCYTOSIS [None]
